FAERS Safety Report 19959153 (Version 2)
Quarter: 2021Q4

REPORT INFORMATION
  Report Type: Spontaneous
  Country: JP (occurrence: JP)
  Receive Date: 20211015
  Receipt Date: 20211112
  Transmission Date: 20220303
  Serious: Yes (Hospitalization)
  Sender: FDA-Public Use
  Company Number: JP-BAXTER-2021BAX031886

PATIENT
  Age: 54 Year
  Sex: Female

DRUGS (2)
  1. DOXORUBICIN HYDROCHLORIDE [Suspect]
     Active Substance: DOXORUBICIN HYDROCHLORIDE
     Indication: Breast cancer stage II
     Dosage: (60 MG/M2,1 D)
     Route: 065
     Dates: start: 201811
  2. CYCLOPHOSPHAMIDE [Suspect]
     Active Substance: CYCLOPHOSPHAMIDE
     Indication: Breast cancer stage II
     Dosage: UNK (600 MG/M2)
     Route: 065
     Dates: start: 201811

REACTIONS (2)
  - Atypical mycobacterial pneumonia [Unknown]
  - Incorrect dose administered [Unknown]
